FAERS Safety Report 7469008-6 (Version None)
Quarter: 2011Q2

REPORT INFORMATION
  Report Type: 
  Country: None (occurrence: None)
  Receive Date: 20110429
  Receipt Date: 20110415
  Transmission Date: 20111010
  Serious: Yes (Hospitalization)
  Sender: FDA-Public Use
  Company Number: WAES 1103USA03710

PATIENT
  Age: 32 Year
  Sex: Male
  Weight: 75.7507 kg

DRUGS (16)
  1. AMBIEN [Concomitant]
  2. NEURONTIN [Concomitant]
  3. EXCEDRIN (MIGRAINE) [Concomitant]
  4. SYNTHROID [Concomitant]
  5. NIACINAMIDE UNK [Suspect]
     Indication: HODGKIN'S DISEASE
     Dosage: 7700 MG/DAILY/PO ; 7700 MG/DAILY/PO
     Route: 048
     Dates: start: 20110320
  6. NIACINAMIDE UNK [Suspect]
     Indication: HODGKIN'S DISEASE
     Dosage: 7700 MG/DAILY/PO ; 7700 MG/DAILY/PO
     Route: 048
     Dates: start: 20110217, end: 20110302
  7. LEXAPRO [Concomitant]
  8. BACTRIM [Concomitant]
  9. COLACE [Concomitant]
  10. PREVACID [Concomitant]
  11. OXYCODONE HCL [Concomitant]
  12. CAP VORINOSTAT UNK [Suspect]
     Indication: HODGKIN'S DISEASE
     Dosage: 400 MG/DAILY/PO ; 400 MG/DAILY/PO
     Route: 048
     Dates: start: 20110217, end: 20110302
  13. CAP VORINOSTAT UNK [Suspect]
     Indication: HODGKIN'S DISEASE
     Dosage: 400 MG/DAILY/PO ; 400 MG/DAILY/PO
     Route: 048
     Dates: start: 20110310
  14. CLARITIN [Concomitant]
  15. XANAX [Concomitant]
  16. CALCIUM (UNSPECIFIED) [Concomitant]

REACTIONS (16)
  - PYREXIA [None]
  - FATIGUE [None]
  - NASOPHARYNGITIS [None]
  - SUPERINFECTION [None]
  - PRURITUS [None]
  - HYPERSENSITIVITY [None]
  - LUNG CONSOLIDATION [None]
  - PNEUMONIA [None]
  - MEDICAL DEVICE COMPLICATION [None]
  - STAPHYLOCOCCAL INFECTION [None]
  - SCAR [None]
  - BLOOD CREATININE INCREASED [None]
  - RASH [None]
  - INFUSION SITE ERYTHEMA [None]
  - INFUSION SITE PAIN [None]
  - BLOOD CULTURE POSITIVE [None]
